FAERS Safety Report 10368685 (Version 1)
Quarter: 2014Q3

REPORT INFORMATION
  Report Type: Spontaneous
  Country: FR (occurrence: FR)
  Receive Date: 20140807
  Receipt Date: 20140807
  Transmission Date: 20150326
  Serious: Yes (Other)
  Sender: FDA-Public Use
  Company Number: FR-TEVA-498413ISR

PATIENT
  Age: 78 Year
  Sex: Male

DRUGS (12)
  1. MOLSIDOMINE TEVA 4MG [Suspect]
     Active Substance: MOLSIDOMINE
     Indication: PRODUCT USED FOR UNKNOWN INDICATION
     Dosage: 3 DOSAGE FORMS DAILY;
     Route: 048
     Dates: start: 200806, end: 200911
  2. ADANCOR 20MG [Suspect]
     Active Substance: NICORANDIL
     Indication: PRODUCT USED FOR UNKNOWN INDICATION
     Dosage: 2 DOSAGE FORMS DAILY; LONG-TERM TREATMENT
     Route: 048
  3. PLAVIX [Concomitant]
     Active Substance: CLOPIDOGREL BISULFATE
  4. INIPOMP [Concomitant]
     Active Substance: PANTOPRAZOLE SODIUM
  5. CARDENSIEL [Concomitant]
     Active Substance: BISOPROLOL FUMARATE
  6. TAMSULOSINE TEVA LP 0.4MG [Suspect]
     Active Substance: TAMSULOSIN HYDROCHLORIDE
     Indication: PRODUCT USED FOR UNKNOWN INDICATION
     Dosage: 1 DOSAGE FORMS DAILY; LONG-TERM TREATMENT
     Route: 048
  7. DIFFU K [Concomitant]
     Active Substance: POTASSIUM CHLORIDE
  8. TEMESTA [Concomitant]
     Active Substance: LORAZEPAM
  9. DEBRIDAT [Concomitant]
     Active Substance: TRIMEBUTINE MALEATE
  10. ATIVAN [Concomitant]
     Active Substance: LORAZEPAM
  11. FORLAX [Concomitant]
     Active Substance: POLYETHYLENE GLYCOL 4000
  12. ATARAX [Concomitant]
     Active Substance: HYDROXYZINE\HYDROXYZINE HYDROCHLORIDE

REACTIONS (1)
  - Loss of consciousness [Unknown]

NARRATIVE: CASE EVENT DATE: 20080618
